FAERS Safety Report 9311888 (Version 1)
Quarter: 2013Q2

REPORT INFORMATION
  Report Type: Report from Study
  Country: US (occurrence: US)
  Receive Date: 20130528
  Receipt Date: 20130528
  Transmission Date: 20140414
  Serious: Yes (Death, Hospitalization)
  Sender: FDA-Public Use
  Company Number: PHEH2013US011518

PATIENT
  Age: 55 Year
  Sex: Female

DRUGS (1)
  1. AFINITOR [Suspect]
     Indication: BREAST CANCER
     Route: 048

REACTIONS (6)
  - Death [Fatal]
  - Acute myocardial infarction [Fatal]
  - Dyspnoea [Fatal]
  - Chest pain [Fatal]
  - Hypotension [Fatal]
  - Haemoglobin decreased [Fatal]
